FAERS Safety Report 8200663-9 (Version None)
Quarter: 2012Q1

REPORT INFORMATION
  Report Type: 
  Country: None (occurrence: None)
  Receive Date: 20120312
  Receipt Date: 20120227
  Transmission Date: 20120608
  Serious: Yes (Disabling)
  Sender: FDA-Public Use
  Company Number: GB-MYLANLABS-2012S1004249

PATIENT
  Age: 47 Year
  Sex: Male
  Weight: 96.9 kg

DRUGS (28)
  1. ASPIRIN [Concomitant]
     Indication: PRODUCT USED FOR UNKNOWN INDICATION
     Dates: start: 20111110, end: 20111208
  2. BISOPROLOL FUMARATE [Concomitant]
     Dates: start: 20111213, end: 20120208
  3. CINCHOCAINE [Concomitant]
     Indication: PRODUCT USED FOR UNKNOWN INDICATION
     Dates: start: 20111125, end: 20111205
  4. VALPROATE SODIUM [Concomitant]
     Indication: PRODUCT USED FOR UNKNOWN INDICATION
     Dates: start: 20111110, end: 20111208
  5. NITROGLYCERIN [Concomitant]
     Dates: start: 20111025, end: 20111209
  6. OMEPRAZOLE [Concomitant]
     Dates: start: 20111213, end: 20120208
  7. SIMVASTATIN [Concomitant]
     Dates: start: 20111213, end: 20120208
  8. ASPIRIN [Concomitant]
     Dates: start: 20111213, end: 20120208
  9. PROCTOSEDYL /00095901/ [Concomitant]
     Dates: start: 20111025, end: 20111209
  10. GLYCEROL 2.6% [Concomitant]
     Indication: PRODUCT USED FOR UNKNOWN INDICATION
     Dates: start: 20111207, end: 20111209
  11. BETAMETHASONE VALERATE [Concomitant]
     Indication: PRODUCT USED FOR UNKNOWN INDICATION
     Dates: start: 20120117, end: 20120214
  12. BISOPROLOL FUMARATE [Concomitant]
     Indication: PRODUCT USED FOR UNKNOWN INDICATION
     Dates: start: 20111110, end: 20111208
  13. ACETAMINOPHEN [Concomitant]
     Indication: PRODUCT USED FOR UNKNOWN INDICATION
     Dates: start: 20111110, end: 20111208
  14. VALPROATE SODIUM [Concomitant]
     Dates: start: 20111213, end: 20120208
  15. RAMIPRIL [Concomitant]
     Indication: PRODUCT USED FOR UNKNOWN INDICATION
     Dates: start: 20111110, end: 20111208
  16. LAXIDO [Concomitant]
     Indication: PRODUCT USED FOR UNKNOWN INDICATION
     Dates: start: 20111110, end: 20111208
  17. PROCTOSEDYL /00095901/ [Concomitant]
     Indication: PRODUCT USED FOR UNKNOWN INDICATION
     Dates: start: 20111213, end: 20120208
  18. RAMIPRIL [Concomitant]
     Dates: start: 20111213, end: 20120208
  19. BENDROFLUMETHIAZIDE [Concomitant]
     Dates: start: 20111213, end: 20120208
  20. LAXIDO [Concomitant]
     Dates: start: 20111213, end: 20120208
  21. ACETAMINOPHEN [Concomitant]
     Dates: start: 20111213, end: 20120208
  22. SIMVASTATIN [Concomitant]
     Indication: PRODUCT USED FOR UNKNOWN INDICATION
     Dates: start: 20111110, end: 20111208
  23. AMLODIPINE [Suspect]
     Indication: PRODUCT USED FOR UNKNOWN INDICATION
     Dates: start: 20120117, end: 20120207
  24. BENDROFLUMETHIAZIDE [Concomitant]
     Indication: PRODUCT USED FOR UNKNOWN INDICATION
     Dates: start: 20111110, end: 20111208
  25. OMEPRAZOLE [Concomitant]
     Indication: PRODUCT USED FOR UNKNOWN INDICATION
     Dates: start: 20111110, end: 20111208
  26. OTOMIZE [Concomitant]
     Indication: PRODUCT USED FOR UNKNOWN INDICATION
     Dates: start: 20111114, end: 20111205
  27. NITROGLYCERIN [Concomitant]
     Indication: PRODUCT USED FOR UNKNOWN INDICATION
     Dates: start: 20111213, end: 20120208
  28. SENNA [Concomitant]
     Indication: PRODUCT USED FOR UNKNOWN INDICATION
     Dates: start: 20111130, end: 20111228

REACTIONS (1)
  - EPILEPSY [None]
